FAERS Safety Report 8845327 (Version 2)
Quarter: 2013Q1

REPORT INFORMATION
  Report Type: Spontaneous
  Country: FR (occurrence: None)
  Receive Date: 20121015
  Receipt Date: 20121217
  Transmission Date: 20140127
  Serious: Yes (Hospitalization)
  Sender: FDA-Public Use
  Company Number: 7164866

PATIENT
  Age: 55 Year
  Sex: Female

DRUGS (4)
  1. LEVOTHYROX [Suspect]
     Indication: PRODUCT USED FOR UNKNOWN INDICATION
     Route: 048
  2. REVAXIS [Suspect]
     Dates: start: 20120322, end: 20120322
  3. FENOFIBRATE [Suspect]
     Route: 048
  4. INIPOMP [Suspect]
     Route: 048

REACTIONS (7)
  - Arthralgia [None]
  - Myalgia [None]
  - Asthenia [None]
  - Acne [None]
  - Pyrexia [None]
  - Rash erythematous [None]
  - Meningitis [None]
